FAERS Safety Report 7381799-1 (Version None)
Quarter: 2011Q1

REPORT INFORMATION
  Report Type: 
  Country: None (occurrence: None)
  Receive Date: 20110329
  Receipt Date: 20110329
  Transmission Date: 20110831
  Serious: Yes (Other)
  Sender: FDA-Public Use
  Company Number: DE-EISAI INC-E2090-01512-SPO-DE

PATIENT
  Age: 28 Year
  Sex: Female

DRUGS (7)
  1. VALPROAT [Interacting]
     Route: 048
     Dates: start: 20101111
  2. ZEBINIX [Interacting]
     Indication: EPILEPSY
     Route: 048
     Dates: end: 20100922
  3. ZEBINIX [Interacting]
     Route: 048
     Dates: start: 20100923
  4. VALPROAT [Interacting]
     Route: 048
     Dates: start: 20101025, end: 20101110
  5. ZONEGRAN [Suspect]
     Indication: EPILEPSY
     Route: 048
  6. VALPROAT [Interacting]
     Indication: EPILEPSY
     Route: 048
     Dates: end: 20101013
  7. VALPROAT [Interacting]
     Route: 048
     Dates: start: 20101014, end: 20101024

REACTIONS (2)
  - DRUG LEVEL INCREASED [None]
  - DRUG INTERACTION [None]
